FAERS Safety Report 16253612 (Version 3)
Quarter: 2019Q3

REPORT INFORMATION
  Report Type: Spontaneous
  Country: US (occurrence: US)
  Receive Date: 20190430
  Receipt Date: 20190821
  Transmission Date: 20191004
  Serious: Yes (Hospitalization, Other)
  Sender: FDA-Public Use
  Company Number: US-AMGEN-USASP2019065246

PATIENT
  Age: 72 Year
  Sex: Female
  Weight: 57.8 kg

DRUGS (1)
  1. PROLIA [Suspect]
     Active Substance: DENOSUMAB
     Indication: OSTEOPENIA
     Dosage: 60 MILLIGRAM, Q6MO
     Route: 058
     Dates: start: 20140813

REACTIONS (2)
  - Off label use [Unknown]
  - Osteoarthritis [Unknown]
